FAERS Safety Report 9168387 (Version 2)
Quarter: 2013Q2

REPORT INFORMATION
  Report Type: Spontaneous
  Country: US (occurrence: US)
  Receive Date: 20130318
  Receipt Date: 20130606
  Transmission Date: 20140414
  Serious: Yes (Hospitalization, Other)
  Sender: FDA-Public Use
  Company Number: US-009507513-1103USA00938

PATIENT
  Sex: Female
  Weight: 89.34 kg

DRUGS (7)
  1. FOSAMAX [Suspect]
     Indication: OSTEOPOROSIS
     Dosage: 10 MG, UNK
     Route: 048
     Dates: start: 19960102, end: 20001020
  2. FOSAMAX [Suspect]
     Dosage: 70 MG, UNK
     Route: 048
     Dates: start: 20001020, end: 20080222
  3. FOSAMAX [Suspect]
     Indication: OSTEOPOROSIS
     Route: 048
     Dates: start: 200802
  4. FOSAMAX [Suspect]
     Indication: OSTEOPOROSIS
     Route: 048
     Dates: start: 200802
  5. VITAMINS (UNSPECIFIED) [Concomitant]
     Dosage: 2000 IU, QD
     Dates: start: 1960
  6. ALENDRONATE SODIUM [Suspect]
     Indication: OSTEOPOROSIS
     Dosage: 70 MG, UNK
     Route: 048
     Dates: start: 20080222, end: 20091231
  7. ALENDRONATE SODIUM [Suspect]
     Dosage: UNK

REACTIONS (11)
  - Femur fracture [Unknown]
  - Open reduction of fracture [Unknown]
  - Femur fracture [Unknown]
  - Vitamin D deficiency [Unknown]
  - Low turnover osteopathy [Unknown]
  - Osteoarthritis [Unknown]
  - Fall [Unknown]
  - Hand fracture [Recovering/Resolving]
  - Joint effusion [Unknown]
  - Arthritis [Unknown]
  - Arthritis [Unknown]
